FAERS Safety Report 24785639 (Version 1)
Quarter: 2024Q4

REPORT INFORMATION
  Report Type: Spontaneous
  Country: TH (occurrence: TH)
  Receive Date: 20241228
  Receipt Date: 20241228
  Transmission Date: 20250114
  Serious: Yes (Other)
  Sender: PRINSTON PHARMACEUTICAL
  Company Number: TH-PRINSTON PHARMACEUTICAL INC.-2024PRN00466

PATIENT
  Age: 4 Decade
  Sex: Male

DRUGS (1)
  1. BUPROPION [Suspect]
     Active Substance: BUPROPION
     Indication: Major depression
     Dosage: 29 TABLETS (8700 MG)
     Route: 048

REACTIONS (4)
  - Status epilepticus [Unknown]
  - Electrocardiogram QT prolonged [Unknown]
  - Overdose [Unknown]
  - Toxicity to various agents [Unknown]
